FAERS Safety Report 6442348-5 (Version None)
Quarter: 2009Q4

REPORT INFORMATION
  Report Type: 
  Country: None (occurrence: None)
  Receive Date: 20091112
  Receipt Date: 20091102
  Transmission Date: 20100525
  Serious: Yes (Other)
  Sender: FDA-Public Use
  Company Number: ADR46282009

PATIENT
  Age: 74 Year
  Sex: Female

DRUGS (3)
  1. SIMVASTATIN [Suspect]
     Indication: CARDIAC DISORDER
     Dosage: 40 MG ORAL
     Route: 048
     Dates: start: 19980101, end: 20020101
  2. ATENOLOL [Concomitant]
  3. FLUOXETINE [Concomitant]

REACTIONS (2)
  - AMNESIA [None]
  - DEPRESSION [None]
